FAERS Safety Report 6554671-4 (Version None)
Quarter: 2010Q1

REPORT INFORMATION
  Report Type: 
  Country: None (occurrence: None)
  Receive Date: 20100127
  Receipt Date: 20091217
  Transmission Date: 20100710
  Serious: Yes (Other)
  Sender: FDA-Public Use
  Company Number: GB-PFIZER INC-2009310466

PATIENT
  Age: 74 Year
  Sex: Female

DRUGS (13)
  1. BLINDED *PLACEBO [Suspect]
     Indication: RHEUMATOID ARTHRITIS
     Dosage: UNK
     Dates: start: 20090709, end: 20091209
  2. BLINDED ATORVASTATIN CALCIUM [Suspect]
     Indication: RHEUMATOID ARTHRITIS
     Dosage: UNK
     Dates: start: 20090709, end: 20091209
  3. BLINDED *PLACEBO [Suspect]
     Indication: CARDIOVASCULAR EVENT PROPHYLAXIS
  4. BLINDED ATORVASTATIN CALCIUM [Suspect]
     Indication: CARDIOVASCULAR EVENT PROPHYLAXIS
  5. ETANERCEPT [Concomitant]
     Dosage: 50 MG, ONCE WEEKLY
     Dates: start: 20091009, end: 20091125
  6. SULPHASALAZINE [Concomitant]
     Dosage: 1 G, 2X/DAY
     Dates: start: 20081018, end: 20091008
  7. LEVOTHYROXINE SODIUM [Concomitant]
     Dosage: 150 MG, 1X/DAY
  8. OMEPRAZOLE [Concomitant]
     Dosage: 20 MG, 1X/DAY
  9. ACETYLSALICYLIC ACID [Concomitant]
     Dosage: 75 MG, 1X/DAY
  10. TRAMADOL [Concomitant]
     Dosage: 50 MG, AS NEEDED
  11. FENTANYL [Concomitant]
     Dosage: 50 MG, EVERY 3 DAYS
     Route: 058
  12. PREGABALIN [Concomitant]
     Dosage: 300 MG, 2X/DAY
  13. ALENDRONIC ACID [Concomitant]
     Dosage: 70 MG, ONCE WEEKLY

REACTIONS (1)
  - LARYNGEAL CANCER [None]
